FAERS Safety Report 5925091-8 (Version None)
Quarter: 2008Q4

REPORT INFORMATION
  Report Type: 
  Country: None (occurrence: None)
  Receive Date: 20081021
  Receipt Date: 20080929
  Transmission Date: 20090506
  Serious: No
  Sender: FDA-Public Use
  Company Number: US-BAYER-200834605NA

PATIENT
  Age: 23 Year
  Sex: Female
  Weight: 82 kg

DRUGS (2)
  1. MIRENA [Suspect]
     Indication: CONTRACEPTION
     Route: 015
     Dates: start: 20070801
  2. VITAMIN TAB [Concomitant]

REACTIONS (5)
  - BREAST TENDERNESS [None]
  - FATIGUE [None]
  - IUCD COMPLICATION [None]
  - NAUSEA [None]
  - PREGNANCY WITH CONTRACEPTIVE DEVICE [None]
